FAERS Safety Report 6088802-X (Version None)
Quarter: 2009Q1

REPORT INFORMATION
  Report Type: 
  Country: None (occurrence: None)
  Receive Date: 20090224
  Receipt Date: 20090213
  Transmission Date: 20090719
  Serious: No
  Sender: FDA-Public Use
  Company Number: US-AVENTIS-200712418GDDC

PATIENT
  Age: 61 Year
  Sex: Male
  Weight: 118.8 kg

DRUGS (9)
  1. APIDRA [Suspect]
     Route: 058
     Dates: start: 20070118, end: 20070130
  2. OPTICLIK (INSULIN INJECTION PEN) [Suspect]
  3. LANTUS [Suspect]
     Route: 058
     Dates: start: 20060622
  4. OPTICLIK (INSULIN INJECTION PEN) [Suspect]
  5. GLYBURIDE [Suspect]
     Route: 048
     Dates: start: 19990101
  6. METFORMIN [Suspect]
     Route: 048
     Dates: start: 19990101
  7. OCUVITE                            /01053801/ [Concomitant]
     Indication: PROPHYLAXIS
     Dosage: DOSE QUANTITY: 2
     Route: 048
     Dates: start: 19970101
  8. LISINOPRIL [Concomitant]
     Route: 048
     Dates: start: 20000101
  9. ZOCOR [Concomitant]
     Route: 048
     Dates: start: 20000101

REACTIONS (3)
  - OVERDOSE [None]
  - PRODUCT QUALITY ISSUE [None]
  - WRONG DRUG ADMINISTERED [None]
